FAERS Safety Report 10049505 (Version 1)
Quarter: 2014Q1

REPORT INFORMATION
  Report Type: Spontaneous
  Country: US (occurrence: None)
  Receive Date: 20140331
  Receipt Date: 20140331
  Transmission Date: 20141002
  Serious: Yes (Death)
  Sender: FDA-Public Use
  Company Number: None

PATIENT
  Age: 75 Year
  Sex: Female
  Weight: 94 kg

DRUGS (1)
  1. WARFARIN [Suspect]
     Dosage: VARIES QD ORAL?YEARS
     Route: 048

REACTIONS (2)
  - Cerebral haemorrhage [None]
  - Haematoma [None]
